FAERS Safety Report 21354004 (Version 1)
Quarter: 2022Q3

REPORT INFORMATION
  Report Type: Spontaneous
  Country: CA (occurrence: CA)
  Receive Date: 20220920
  Receipt Date: 20220920
  Transmission Date: 20221027
  Serious: Yes (Hospitalization)
  Sender: FDA-Public Use
  Company Number: None

PATIENT
  Age: 33 Year
  Sex: Male

DRUGS (3)
  1. TACROLIMUS [Suspect]
     Active Substance: TACROLIMUS
     Indication: Renal transplant
     Dosage: 1 EVERY 1 DAYS
     Route: 048
  2. TACROLIMUS [Suspect]
     Active Substance: TACROLIMUS
     Indication: Product used for unknown indication
     Dosage: CAPSULE, EXTENDED RELEASE
  3. TACROLIMUS [Suspect]
     Active Substance: TACROLIMUS
     Indication: Renal transplant
     Dosage: 1 EVERY 1 DAYS
     Route: 048

REACTIONS (6)
  - Infection [Unknown]
  - Pyrexia [Unknown]
  - Culture positive [Unknown]
  - Product availability issue [Unknown]
  - Tremor [Unknown]
  - Urinary tract infection [Unknown]
